FAERS Safety Report 6289143-8 (Version None)
Quarter: 2009Q3

REPORT INFORMATION
  Report Type: 
  Country: None (occurrence: None)
  Receive Date: 20090728
  Receipt Date: 20090721
  Transmission Date: 20100115
  Serious: Yes (Other)
  Sender: FDA-Public Use
  Company Number: 2008SP019512

PATIENT
  Age: 4 Year
  Sex: Female
  Weight: 24 kg

DRUGS (4)
  1. DESLORATADINE [Suspect]
     Indication: RHINITIS
     Dosage: 5 ML;QD
     Dates: start: 20080906
  2. HALOG [Concomitant]
  3. PLURAIR [Concomitant]
  4. AZITHROMYCIN [Concomitant]

REACTIONS (4)
  - EPISTAXIS [None]
  - EYE PAIN [None]
  - OCULAR HYPERAEMIA [None]
  - PRURITUS [None]
